FAERS Safety Report 12131986 (Version 1)
Quarter: 2016Q1

REPORT INFORMATION
  Report Type: Spontaneous
  Country: CN (occurrence: CN)
  Receive Date: 20160301
  Receipt Date: 20160301
  Transmission Date: 20160526
  Serious: Yes (Other)
  Sender: FDA-Public Use
  Company Number: CN-ASTRAZENECA-2016SE21223

PATIENT
  Age: 25769 Day
  Sex: Female
  Weight: 70 kg

DRUGS (3)
  1. BUDESONIDE. [Suspect]
     Active Substance: BUDESONIDE
     Indication: LUNG INFECTION
     Route: 055
     Dates: start: 20150802, end: 20150802
  2. IPRATROPIUM BROMIDE. [Suspect]
     Active Substance: IPRATROPIUM BROMIDE
     Indication: LUNG INFECTION
     Route: 055
     Dates: start: 20150802, end: 20150802
  3. AMBROXOL HYDROCHLORIDE [Suspect]
     Active Substance: AMBROXOL HYDROCHLORIDE
     Indication: LUNG INFECTION
     Route: 055
     Dates: start: 20150802, end: 20150802

REACTIONS (5)
  - Atrial fibrillation [Recovering/Resolving]
  - Tremor [Recovering/Resolving]
  - Heart rate increased [Recovering/Resolving]
  - Palpitations [Recovering/Resolving]
  - Dyspnoea [Recovering/Resolving]

NARRATIVE: CASE EVENT DATE: 20150802
